FAERS Safety Report 5823880-1 (Version None)
Quarter: 2008Q3

REPORT INFORMATION
  Report Type: 
  Country: None (occurrence: None)
  Receive Date: 20080725
  Receipt Date: 20080718
  Transmission Date: 20090109
  Serious: Yes (Other)
  Sender: FDA-Public Use
  Company Number: NL-GENENTECH-265101

PATIENT
  Age: 62 Year
  Sex: Male

DRUGS (5)
  1. BEVACIZUMAB [Suspect]
     Indication: COLORECTAL CANCER
     Dosage: 7.5
     Route: 042
  2. CAPECITABINE [Suspect]
     Indication: COLORECTAL CANCER
  3. OXALIPLATIN [Suspect]
     Indication: COLORECTAL CANCER
  4. PROTON PUMP INHIBITOR (UNK INGREDIENTS) [Concomitant]
     Indication: DRUG USE FOR UNKNOWN INDICATION
  5. NSAID (UNK INGREDIENTS) [Concomitant]
     Indication: DRUG USE FOR UNKNOWN INDICATION

REACTIONS (1)
  - GASTROINTESTINAL ULCER [None]
